FAERS Safety Report 4279464-2 (Version None)
Quarter: 2004Q1

REPORT INFORMATION
  Report Type: 
  Country: None (occurrence: None)
  Receive Date: 20040127
  Receipt Date: 20040121
  Transmission Date: 20041129
  Serious: Yes (Other)
  Sender: FDA-Public Use
  Company Number: US-GLAXOSMITHKLINE-A0494497A

PATIENT
  Sex: Female

DRUGS (2)
  1. ZOFRAN [Suspect]
     Indication: ILL-DEFINED DISORDER
     Route: 065
  2. UNSPECIFIED MEDICATION [Concomitant]

REACTIONS (1)
  - COLITIS ISCHAEMIC [None]
